FAERS Safety Report 8349605-6 (Version None)
Quarter: 2012Q2

REPORT INFORMATION
  Report Type: 
  Country: None (occurrence: None)
  Receive Date: 20120510
  Receipt Date: 20120502
  Transmission Date: 20120825
  Serious: Yes (Hospitalization, Other)
  Sender: FDA-Public Use
  Company Number: US-BAYER-2011-107932

PATIENT
  Age: 32 Year
  Sex: Female
  Weight: 56.689 kg

DRUGS (4)
  1. METOCLOPRAM [Concomitant]
     Dosage: 10 MG, UNK
     Route: 048
     Dates: start: 20090316
  2. NABUMETONE [Concomitant]
     Dosage: 750 MG, UNK
     Route: 048
     Dates: start: 20090204
  3. YAZ [Suspect]
     Indication: CONTRACEPTION
     Dosage: UNK
     Dates: start: 20051101, end: 20091001
  4. YASMIN [Suspect]
     Indication: CONTRACEPTION
     Dosage: UNK
     Dates: start: 20051101, end: 20091001

REACTIONS (12)
  - CHOLECYSTITIS CHRONIC [None]
  - CHOLECYSTECTOMY [None]
  - ANXIETY [None]
  - DEPRESSION [None]
  - ABDOMINAL DISTENSION [None]
  - DYSPEPSIA [None]
  - SCAR [None]
  - CONSTIPATION [None]
  - INJURY [None]
  - PAIN [None]
  - FLATULENCE [None]
  - DIARRHOEA [None]
